FAERS Safety Report 8376537-X (Version None)
Quarter: 2012Q1

REPORT INFORMATION
  Report Type: 
  Country: None (occurrence: None)
  Receive Date: 20120323
  Receipt Date: 20110131
  Transmission Date: 20120608
  Serious: Yes (Other)
  Sender: FDA-Public Use
  Company Number: 163-21880-10121410

PATIENT
  Age: 58 Year
  Sex: Female

DRUGS (13)
  1. ZOMETA [Concomitant]
  2. ALBUTEROL [Concomitant]
  3. ACYCLOVIR [Concomitant]
  4. HYDROMORPHONE HCL [Concomitant]
  5. CITALOPRAM HYDROBROMIDE [Concomitant]
  6. REVLIMID [Suspect]
     Indication: MULTIPLE MYELOMA
     Dosage: SEE IMAGE
     Route: 048
     Dates: start: 20101001, end: 20101108
  7. REVLIMID [Suspect]
     Indication: MULTIPLE MYELOMA
     Dosage: SEE IMAGE
     Route: 048
     Dates: start: 20091001
  8. REVLIMID [Suspect]
     Indication: MULTIPLE MYELOMA
     Dosage: SEE IMAGE
     Route: 048
     Dates: start: 20101227, end: 20110125
  9. REVLIMID [Suspect]
     Indication: MULTIPLE MYELOMA
     Dosage: SEE IMAGE
     Route: 048
     Dates: start: 20101214, end: 20101221
  10. THYROID TAB [Concomitant]
  11. REVLIMID [Suspect]
  12. OMEPRAZOLE [Concomitant]
  13. FOLIC ACID [Concomitant]

REACTIONS (4)
  - FULL BLOOD COUNT DECREASED [None]
  - CELLULITIS [None]
  - RASH [None]
  - WHITE BLOOD CELL COUNT DECREASED [None]
